FAERS Safety Report 5721624-5 (Version None)
Quarter: 2008Q2

REPORT INFORMATION
  Report Type: 
  Country: None (occurrence: None)
  Receive Date: 20080429
  Receipt Date: 20070305
  Transmission Date: 20081010
  Serious: No
  Sender: FDA-Public Use
  Company Number: US-ASTRAZENECA-2007UW04195

PATIENT
  Age: 75 Year
  Sex: Female
  Weight: 51.3 kg

DRUGS (13)
  1. NEXIUM [Suspect]
     Indication: GASTROOESOPHAGEAL REFLUX DISEASE
     Route: 048
  2. VERAPAMIL [Concomitant]
  3. SIMVASTATIN [Concomitant]
  4. BENICAR [Concomitant]
  5. ASPIRIN [Concomitant]
  6. CALCIUM [Concomitant]
  7. ASCORBIC ACID [Concomitant]
  8. MULTI-VITAMIN [Concomitant]
  9. VITAMIN E [Concomitant]
  10. PREDNISOLONE EYE DROPS [Concomitant]
     Route: 047
  11. TIMOLOL EYE DROPS [Concomitant]
     Route: 047
  12. XYANAX EYE DROPS [Concomitant]
     Route: 047
  13. XANAX [Concomitant]

REACTIONS (3)
  - BURNING SENSATION [None]
  - ORAL DISCOMFORT [None]
  - THROAT IRRITATION [None]
